FAERS Safety Report 15348728 (Version 1)
Quarter: 2018Q3

REPORT INFORMATION
  Report Type: Spontaneous
  Country: JP (occurrence: JP)
  Receive Date: 20180904
  Receipt Date: 20180904
  Transmission Date: 20181010
  Serious: Yes (Other)
  Sender: FDA-Public Use
  Company Number: JP-PFIZER INC-2018348924

PATIENT

DRUGS (1)
  1. LYRICA [Suspect]
     Active Substance: PREGABALIN
     Indication: PROCEDURAL PAIN
     Dosage: UNK
     Route: 048

REACTIONS (2)
  - Product use in unapproved indication [Unknown]
  - Aspartate aminotransferase increased [Unknown]
